FAERS Safety Report 24564504 (Version 1)
Quarter: 2024Q4

REPORT INFORMATION
  Report Type: Spontaneous
  Country: US (occurrence: None)
  Receive Date: 20241029
  Receipt Date: 20241029
  Transmission Date: 20250115
  Serious: Yes (Other)
  Sender: Public
  Company Number: None

PATIENT
  Age: 28 Year
  Sex: Female
  Weight: 63.5 kg

DRUGS (5)
  1. FLUOXETINE [Suspect]
     Active Substance: FLUOXETINE HYDROCHLORIDE
  2. LISDEXAMFETAMINE DIMSYLATE [Concomitant]
     Dates: start: 20240317
  3. LORAZEPAM [Concomitant]
     Dates: start: 20240317
  4. ONDANSETRON [Concomitant]
     Dates: start: 20240317
  5. LETROZOLE [Concomitant]
     Dates: start: 20240317

REACTIONS (2)
  - Plasma cell myeloma [None]
  - Exposure during pregnancy [None]

NARRATIVE: CASE EVENT DATE: 20240512
